FAERS Safety Report 14144724 (Version 5)
Quarter: 2018Q1

REPORT INFORMATION
  Report Type: Spontaneous
  Country: PK (occurrence: PK)
  Receive Date: 20171031
  Receipt Date: 20180307
  Transmission Date: 20180508
  Serious: Yes (Hospitalization, Disabling, Other)
  Sender: FDA-Public Use
  Company Number: PK-CONCORDIA PHARMACEUTICALS INC.-E2B_00008439

PATIENT
  Sex: Male

DRUGS (3)
  1. PREDNISOLONE  TABLET [Suspect]
     Active Substance: PREDNISOLONE
     Route: 048
  2. BECLOMETASONE DIPROPIONATE/SALBUTAMOL [Suspect]
     Active Substance: ALBUTEROL SULFATE\BECLOMETHASONE DIPROPIONATE
     Indication: ASTHMA
     Dosage: ONE PUFF TWICE DAILY;  INHALED SABA/INHALED BECLOMETHASONE ( 50/100 MCG RESPECTIVELY)
     Route: 055
  3. PREDNISOLONE  TABLET [Suspect]
     Active Substance: PREDNISOLONE
     Indication: ASTHMA
     Dosage: UP TO 20 MG/DAY, INTERMITTENTLY FOR THE PAST 2-3 YEARS
     Route: 048

REACTIONS (4)
  - Spinal cord compression [Unknown]
  - Paraplegia [Unknown]
  - Osteoporosis [Unknown]
  - Spinal fracture [Unknown]
